FAERS Safety Report 4856047-4 (Version None)
Quarter: 2005Q4

REPORT INFORMATION
  Report Type: 
  Country: None (occurrence: None)
  Receive Date: 20051216
  Receipt Date: 20051207
  Transmission Date: 20060501
  Serious: Yes (Hospitalization, Other)
  Sender: FDA-Public Use
  Company Number: PHEH2005US13295

PATIENT
  Age: 62 Year
  Sex: Male

DRUGS (5)
  1. LOTREL [Suspect]
     Indication: HYPERTENSION
     Dosage: 5MG AML/10MG BEN, QD
     Route: 048
     Dates: start: 19970101, end: 20051206
  2. GLUCOPHAGE [Concomitant]
  3. GLUCOTROL [Concomitant]
  4. LIPITOR [Concomitant]
  5. HYDROCHLOROTHIAZIDE [Concomitant]

REACTIONS (5)
  - CHEST PAIN [None]
  - DIABETIC FOOT [None]
  - DIABETIC FOOT INFECTION [None]
  - LEG AMPUTATION [None]
  - MYOCARDIAL INFARCTION [None]
